FAERS Safety Report 4942608-0 (Version None)
Quarter: 2006Q1

REPORT INFORMATION
  Report Type: 
  Country: None (occurrence: None)
  Receive Date: 20060310
  Receipt Date: 20060224
  Transmission Date: 20060701
  Serious: Yes (Other)
  Sender: FDA-Public Use
  Company Number: 222522

PATIENT
  Age: 59 Year
  Sex: Female
  Weight: 79.8 kg

DRUGS (2)
  1. RAPTIVA [Suspect]
     Indication: PSORIASIS
     Dosage: 80 MG, 1/WEEK, SUBCUTANEOUS
     Route: 058
     Dates: start: 20050804, end: 20060101
  2. TOPICAL STEROID (UNKNOWN) (TOPICAL STEROID NOS) [Concomitant]

REACTIONS (1)
  - BREAST CANCER FEMALE [None]
